FAERS Safety Report 5478867-8 (Version None)
Quarter: 2007Q4

REPORT INFORMATION
  Report Type: 
  Country: None (occurrence: None)
  Receive Date: 20071002
  Receipt Date: 20070919
  Transmission Date: 20080405
  Serious: Yes (Hospitalization)
  Sender: FDA-Public Use
  Company Number: 1-15342662/MED-07200

PATIENT
  Age: 83 Year
  Sex: Female
  Weight: 63.5036 kg

DRUGS (9)
  1. DOXYCYCLINE HYCLATE [Suspect]
     Indication: BRONCHITIS
     Dosage: 100MG, TWICE DAILY,ORAL
     Route: 048
     Dates: start: 20070828, end: 20070831
  2. CRESTOR [Concomitant]
  3. FUROSEMIDE [Concomitant]
  4. CLONIDINE [Concomitant]
  5. CLONAZEPAM [Concomitant]
  6. CITALOPRAM HYDROBROMIDE [Concomitant]
  7. HYDROCHLOROTHIAZIDE [Concomitant]
  8. GABAPENTIN [Concomitant]
  9. COREG [Concomitant]

REACTIONS (3)
  - DYSPNOEA [None]
  - GASTRITIS [None]
  - GASTROOESOPHAGEAL REFLUX DISEASE [None]
